FAERS Safety Report 8819435 (Version 1)
Quarter: 2012Q4

REPORT INFORMATION
  Report Type: 
  Country: US (occurrence: US)
  Receive Date: 20121001
  Receipt Date: 20121001
  Transmission Date: 20130627
  Serious: No
  Sender: FDA-Public Use
  Company Number: US-009507513-1209USA006621

PATIENT
  Age: 61 Year
  Sex: Male
  Weight: 184 kg

DRUGS (5)
  1. PEGINTRON [Suspect]
     Dosage: 150 Microgram, qw 4 SYR/PK
     Route: 058
  2. REBETOL [Suspect]
     Route: 048
  3. ASPIRIN [Concomitant]
     Route: 048
  4. NIASPAN [Concomitant]
     Dosage: 1000 ER
     Route: 048
  5. INCIVEK [Concomitant]
     Route: 048

REACTIONS (2)
  - Influenza like illness [Unknown]
  - Rash [Unknown]
